FAERS Safety Report 4980295-6 (Version None)
Quarter: 2006Q2

REPORT INFORMATION
  Report Type: 
  Country: None (occurrence: None)
  Receive Date: 20060424
  Receipt Date: 20060321
  Transmission Date: 20061013
  Serious: Yes (Hospitalization, Disabling, Other)
  Sender: FDA-Public Use
  Company Number: GB-ABBOTT-06P-167-0328849-00

PATIENT
  Sex: Female
  Weight: 151 kg

DRUGS (7)
  1. REDUCTIL 10MG [Suspect]
     Indication: OBESITY
     Route: 048
     Dates: start: 20040601, end: 20040701
  2. REDUCTIL 10MG [Suspect]
     Route: 048
     Dates: start: 20050301, end: 20050501
  3. DICLOFENAC MR [Concomitant]
     Indication: ARTHRALGIA
     Route: 048
     Dates: start: 20020701
  4. RAMIPRIL [Concomitant]
     Indication: HYPERTENSION
     Route: 048
     Dates: start: 20041001
  5. BENDROFLUMETHAZIDE [Concomitant]
     Indication: HYPERTENSION
     Route: 048
     Dates: start: 20041101
  6. LEVOTHYROXINE SODIUM [Concomitant]
     Indication: HYPOTHYROIDISM
     Route: 048
     Dates: start: 20021201
  7. ATORVASTATIN [Concomitant]
     Indication: BLOOD CHOLESTEROL INCREASED
     Route: 048
     Dates: start: 20050201

REACTIONS (4)
  - ASTHENIA [None]
  - MYELITIS [None]
  - MYELOPATHY [None]
  - PARAESTHESIA [None]
